FAERS Safety Report 22049561 (Version 2)
Quarter: 2023Q2

REPORT INFORMATION
  Report Type: Spontaneous
  Country: US (occurrence: US)
  Receive Date: 20230301
  Receipt Date: 20230509
  Transmission Date: 20230722
  Serious: Yes (Hospitalization)
  Sender: FDA-Public Use
  Company Number: US-BAYER-2023A023839

PATIENT
  Age: 43 Year
  Sex: Male

DRUGS (2)
  1. KOVALTRY [Suspect]
     Active Substance: ANTIHEMOPHILIC FACTOR, HUMAN RECOMBINANT
     Indication: Chronic hepatitis C
     Dosage: 1740-2175 UNITS FOR MINOR BLEEDS AND 3480-4350 UNITS FOR MAJOR BLEEDS, SLOW I.V. PUSH
     Route: 042
     Dates: start: 202301
  2. KOVALTRY [Suspect]
     Active Substance: ANTIHEMOPHILIC FACTOR, HUMAN RECOMBINANT
     Indication: Chronic hepatitis C
     Dosage: UNK, FOR THE GASTROINTESTINAL BLEED TREATMENT
     Dates: start: 202302

REACTIONS (2)
  - Gastrointestinal haemorrhage [Not Recovered/Not Resolved]
  - Off label use [None]

NARRATIVE: CASE EVENT DATE: 20230213
